FAERS Safety Report 9441140 (Version 1)
Quarter: 2013Q3

REPORT INFORMATION
  Report Type: Spontaneous
  Country: GB (occurrence: None)
  Receive Date: 20130801
  Receipt Date: 20130801
  Transmission Date: 20140515
  Serious: Yes (Other)
  Sender: FDA-Public Use
  Company Number: AUR-APL-2013-06253

PATIENT
  Age: 57 Year
  Sex: Female
  Weight: 65.31 kg

DRUGS (2)
  1. RAMIPRIL (RAMIPRIL) [Suspect]
     Indication: HYPERTENSION
     Route: 048
  2. AMLODIPINE (AMLODIPINE) [Concomitant]

REACTIONS (5)
  - Cough [None]
  - Sleep disorder [None]
  - Food aversion [None]
  - Increased upper airway secretion [None]
  - Impaired work ability [None]
